FAERS Safety Report 7350138-4 (Version None)
Quarter: 2011Q1

REPORT INFORMATION
  Report Type: 
  Country: None (occurrence: None)
  Receive Date: 20110314
  Receipt Date: 20110307
  Transmission Date: 20110831
  Serious: Yes (Other)
  Sender: FDA-Public Use
  Company Number: A0917618A

PATIENT
  Age: 17 Year
  Sex: Female

DRUGS (2)
  1. ALBUTEROL [Concomitant]
  2. FLOVENT [Suspect]

REACTIONS (5)
  - DYSPNOEA [None]
  - HYPERVENTILATION [None]
  - MALAISE [None]
  - HEADACHE [None]
  - ASTHMA [None]
